FAERS Safety Report 22594644 (Version 1)
Quarter: 2023Q2

REPORT INFORMATION
  Report Type: Report from Study
  Country: CA (occurrence: CA)
  Receive Date: 20230613
  Receipt Date: 20230613
  Transmission Date: 20230722
  Serious: Yes (Other)
  Sender: FDA-Public Use
  Company Number: CA-JNJFOC-20230526749

PATIENT
  Age: 3 Year
  Sex: Male

DRUGS (2)
  1. REMICADE [Suspect]
     Active Substance: INFLIXIMAB
     Indication: Product used for unknown indication
     Route: 042
  2. CLONIDINE [Suspect]
     Active Substance: CLONIDINE
     Indication: Product used for unknown indication
     Route: 065
     Dates: start: 20230426

REACTIONS (6)
  - Haematochezia [Unknown]
  - Abdominal pain [Unknown]
  - Abnormal faeces [Unknown]
  - Decreased appetite [Not Recovered/Not Resolved]
  - Discomfort [Unknown]
  - Hypophagia [Unknown]

NARRATIVE: CASE EVENT DATE: 20230426
